FAERS Safety Report 5756466-8 (Version None)
Quarter: 2008Q2

REPORT INFORMATION
  Report Type: 
  Country: None (occurrence: None)
  Receive Date: 20080528
  Receipt Date: 20080519
  Transmission Date: 20081010
  Serious: Yes (Hospitalization)
  Sender: FDA-Public Use
  Company Number: 2008AP001116

PATIENT
  Age: 65 Year
  Sex: Female

DRUGS (3)
  1. ACYCLOVIR [Suspect]
     Indication: HERPES ZOSTER
     Dosage: 1600 MG;QID;PO; 800 MG;QD;PO
     Route: 048
     Dates: start: 20080429
  2. ACYCLOVIR [Suspect]
     Indication: HERPES ZOSTER
     Dosage: 1600 MG;QID;PO; 800 MG;QD;PO
     Route: 048
     Dates: start: 20080506
  3. WARFARIN SODIUM [Concomitant]

REACTIONS (8)
  - ABDOMINAL PAIN UPPER [None]
  - BURNING SENSATION [None]
  - DIARRHOEA [None]
  - HEADACHE [None]
  - NAUSEA [None]
  - PAIN [None]
  - PAIN IN EXTREMITY [None]
  - PYREXIA [None]
